FAERS Safety Report 9239516 (Version 4)
Quarter: 2013Q3

REPORT INFORMATION
  Report Type: Report from Study
  Country: CH (occurrence: CH)
  Receive Date: 20130418
  Receipt Date: 20130928
  Transmission Date: 20140515
  Serious: Yes (Hospitalization)
  Sender: FDA-Public Use
  Company Number: CH-BAYER-2013-038654

PATIENT
  Sex: Male
  Weight: 70 kg

DRUGS (7)
  1. REGORAFENIB [Suspect]
     Indication: COLORECTAL CANCER METASTATIC
     Dosage: DAILY DOSE 160 MG
     Route: 048
     Dates: start: 20130220, end: 20130304
  2. REGORAFENIB [Suspect]
     Indication: COLORECTAL CANCER METASTATIC
     Dosage: DAILY DOSE 120 MG
     Route: 048
     Dates: start: 20130305, end: 20130318
  3. PLAVIX [Concomitant]
     Dosage: DAILY DOSE 150 MG
     Route: 048
     Dates: start: 20121126, end: 20130418
  4. COAPROVEL [Concomitant]
     Indication: HYPERTENSION
     Dosage: 150/25
     Route: 048
     Dates: start: 20121126, end: 20130418
  5. BELOC ZOK [Concomitant]
     Indication: HYPERTENSION
     Dosage: DAILY DOSE 50 MG
     Route: 048
     Dates: start: 20121126, end: 20130418
  6. EZETROL [Concomitant]
     Indication: HYPERCHOLESTEROLAEMIA
     Dosage: DAILY DOSE 10 MG
     Route: 048
     Dates: start: 20121126, end: 20130418
  7. SERESTA [Concomitant]
     Indication: STRESS
     Dosage: DAILY DOSE 12.5 MG
     Route: 048
     Dates: start: 20130219, end: 20130418

REACTIONS (2)
  - Tachycardia [Recovering/Resolving]
  - Atrial fibrillation [Recovered/Resolved]
